FAERS Safety Report 8514722-4 (Version None)
Quarter: 2012Q3

REPORT INFORMATION
  Report Type: 
  Country: None (occurrence: None)
  Receive Date: 20120717
  Receipt Date: 20120706
  Transmission Date: 20120928
  Serious: Yes (Hospitalization, Other)
  Sender: FDA-Public Use
  Company Number: JP-ASTRAZENECA-2012SE31808

PATIENT
  Age: 57 Year
  Sex: Female
  Weight: 43 kg

DRUGS (10)
  1. MAGLAX [Concomitant]
     Indication: SYSTEMIC LUPUS ERYTHEMATOSUS
     Route: 048
     Dates: start: 20110322
  2. AMOBAN [Concomitant]
     Indication: SUBSTANCE-INDUCED PSYCHOTIC DISORDER
     Dates: start: 20110322
  3. PREDNISOLONE [Concomitant]
     Indication: SYSTEMIC LUPUS ERYTHEMATOSUS
     Route: 048
  4. NITRAZEPAM [Concomitant]
     Indication: SUBSTANCE-INDUCED PSYCHOTIC DISORDER
     Dates: start: 20110322
  5. SEROQUEL [Suspect]
     Indication: SUBSTANCE-INDUCED PSYCHOTIC DISORDER
     Dosage: 100 MG UID
     Route: 048
     Dates: start: 20110914, end: 20111008
  6. PREDNISOLONE [Concomitant]
     Route: 048
  7. ASPIRIN [Concomitant]
     Indication: SYSTEMIC LUPUS ERYTHEMATOSUS
     Dates: start: 20110322
  8. OLMESARTAN MEDOXOMIL [Concomitant]
     Indication: SYSTEMIC LUPUS ERYTHEMATOSUS
     Dates: start: 20110322
  9. ZYPREXA [Concomitant]
     Indication: SUBSTANCE-INDUCED PSYCHOTIC DISORDER
  10. LUVOX [Concomitant]
     Indication: SYSTEMIC LUPUS ERYTHEMATOSUS
     Dates: start: 20110914

REACTIONS (3)
  - CARDIAC FAILURE [None]
  - SINUS BRADYCARDIA [None]
  - INTENTIONAL DRUG MISUSE [None]
